FAERS Safety Report 4338387-0 (Version None)
Quarter: 2004Q2

REPORT INFORMATION
  Report Type: 
  Country: None (occurrence: None)
  Receive Date: 20040407
  Receipt Date: 20040324
  Transmission Date: 20050107
  Serious: No
  Sender: FDA-Public Use
  Company Number: 2003PK02107

PATIENT
  Age: 67 Year
  Sex: Male
  Weight: 80 kg

DRUGS (3)
  1. CARBOSTESIN ^ASTRA^ [Suspect]
     Indication: POLYNEUROPATHY
     Dosage: 90 MG DAILY PNEU
     Dates: start: 20031028, end: 20031117
  2. LIDOCAINE 1% [Concomitant]
  3. POLYBION [Concomitant]

REACTIONS (10)
  - ANAEMIA [None]
  - CHOLANGITIS [None]
  - CHOLESTASIS [None]
  - HEPATIC STEATOSIS [None]
  - HEPATITIS TOXIC [None]
  - HYPOKALAEMIA [None]
  - INFECTION [None]
  - PANCREATITIS ACUTE [None]
  - POST PROCEDURAL COMPLICATION [None]
  - WEIGHT DECREASED [None]
